FAERS Safety Report 6175664-5 (Version None)
Quarter: 2009Q2

REPORT INFORMATION
  Report Type: 
  Country: None (occurrence: None)
  Receive Date: 20090429
  Receipt Date: 20090414
  Transmission Date: 20091009
  Serious: Yes (Other)
  Sender: FDA-Public Use
  Company Number: BVT-000065

PATIENT
  Age: 59 Year
  Sex: Female

DRUGS (4)
  1. KEPIVANCE [Suspect]
     Indication: MUCOSAL INFLAMMATION
     Dosage: (60 MCG/KG QD BEFORE COMMENCEMENT OF THE CONDITIONING REGIMEN), (60 MCG/KG QD AFTER STEM CELL INFUS
  2. ETOPOSIDE [Suspect]
     Indication: CHEMOTHERAPY
  3. BUSULPHAN () [Concomitant]
  4. CYCLOPHOSPHAMIDE [Concomitant]

REACTIONS (1)
  - EXFOLIATIVE RASH [None]
